FAERS Safety Report 5625009-1 (Version None)
Quarter: 2008Q1

REPORT INFORMATION
  Report Type: 
  Country: None (occurrence: None)
  Receive Date: 20080213
  Receipt Date: 20080201
  Transmission Date: 20080703
  Serious: Yes (Other)
  Sender: FDA-Public Use
  Company Number: US-PFIZER INC-2007096141

PATIENT
  Sex: Female
  Weight: 62.6 kg

DRUGS (13)
  1. DETROL LA [Suspect]
     Indication: BLADDER PROLAPSE
     Route: 048
  2. DETROL LA [Suspect]
     Indication: NOCTURIA
  3. DETROL LA [Suspect]
     Indication: STRESS URINARY INCONTINENCE
  4. METFORMIN HCL [Concomitant]
  5. GLIPIZIDE [Concomitant]
  6. LISINOPRIL [Concomitant]
  7. CATAPRES [Concomitant]
  8. ALLOPURINOL [Concomitant]
     Dosage: DAILY DOSE:100MG
  9. HYDROCHLOROTHIAZIDE [Concomitant]
     Dosage: DAILY DOSE:25MG
  10. ACETYLSALICYLIC ACID SRT [Concomitant]
     Dosage: DAILY DOSE:81MG
  11. MULTI-VITAMINS [Concomitant]
     Dosage: FREQ:DAILY
  12. PRAVACHOL [Concomitant]
     Dosage: DAILY DOSE:40MG
  13. XANAX [Concomitant]
     Dosage: DAILY DOSE:.25MG

REACTIONS (4)
  - ATROPHIC VULVOVAGINITIS [None]
  - BLOOD GLUCOSE INCREASED [None]
  - DRY MOUTH [None]
  - PELVIC FLOOR DYSSYNERGIA [None]
